FAERS Safety Report 7348039-0 (Version None)
Quarter: 2011Q1

REPORT INFORMATION
  Report Type: 
  Country: None (occurrence: None)
  Receive Date: 20110311
  Receipt Date: 20110302
  Transmission Date: 20110831
  Serious: Yes (Other)
  Sender: FDA-Public Use
  Company Number: CA-JNJFOC-20110302206

PATIENT
  Sex: Female
  Weight: 68.8 kg

DRUGS (3)
  1. CODEINE [Concomitant]
     Route: 065
  2. REMICADE [Suspect]
     Indication: CROHN'S DISEASE
     Dosage: 10 INFUSIONS TO THE PRESENT
     Route: 042
  3. IRON [Concomitant]
     Route: 042

REACTIONS (1)
  - POUCHITIS [None]
